FAERS Safety Report 14243627 (Version 3)
Quarter: 2022Q1

REPORT INFORMATION
  Report Type: Spontaneous
  Country: FR (occurrence: FR)
  Receive Date: 20171201
  Receipt Date: 20220207
  Transmission Date: 20220424
  Serious: Yes (Hospitalization, Disabling, Congenital Anomaly, Other)
  Sender: FDA-Public Use
  Company Number: FR-ABBVIE-17P-056-2180356-00

PATIENT
  Sex: Male
  Weight: 4.19 kg

DRUGS (2)
  1. VALPROATE SODIUM [Suspect]
     Active Substance: VALPROATE SODIUM
     Indication: Maternal exposure timing unspecified
     Route: 064
  2. VALPROATE SODIUM [Suspect]
     Active Substance: VALPROATE SODIUM
     Indication: Maternal exposure timing unspecified
     Route: 064

REACTIONS (16)
  - Psychomotor retardation [Not Recovered/Not Resolved]
  - Speech disorder [Not Recovered/Not Resolved]
  - Speech disorder developmental [Unknown]
  - Intellectual disability [Unknown]
  - Macrocephaly [Unknown]
  - Congenital anomaly [Not Recovered/Not Resolved]
  - Generalised tonic-clonic seizure [Unknown]
  - Speech sound disorder [Unknown]
  - Echolalia [Unknown]
  - Jaundice [Unknown]
  - Foot deformity [Unknown]
  - Knee deformity [Unknown]
  - Disability [Unknown]
  - Developmental delay [Unknown]
  - Anxiety [Unknown]
  - Foetal exposure during pregnancy [Unknown]
